FAERS Safety Report 6559484-5 (Version None)
Quarter: 2010Q1

REPORT INFORMATION
  Report Type: 
  Country: None (occurrence: None)
  Receive Date: 20100129
  Receipt Date: 20091006
  Transmission Date: 20100710
  Serious: No
  Sender: FDA-Public Use
  Company Number: US-ABBOTT-09P-163-0595741-00

PATIENT
  Sex: Male
  Weight: 145.28 kg

DRUGS (3)
  1. HUMIRA [Suspect]
     Indication: CROHN'S DISEASE
     Route: 058
     Dates: start: 20090818, end: 20091001
  2. HUMIRA [Suspect]
     Route: 058
     Dates: start: 20090902
  3. HUMIRA [Suspect]
     Route: 058
     Dates: start: 20090917

REACTIONS (6)
  - DIZZINESS [None]
  - FATIGUE [None]
  - HYPOAESTHESIA [None]
  - NAUSEA [None]
  - RASH [None]
  - RASH PAPULAR [None]
